FAERS Safety Report 9315097 (Version 1)
Quarter: 2013Q2

REPORT INFORMATION
  Report Type: Spontaneous
  Country: FR (occurrence: FR)
  Receive Date: 20130529
  Receipt Date: 20130529
  Transmission Date: 20140414
  Serious: Yes (Hospitalization)
  Sender: FDA-Public Use
  Company Number: FR-ABBOTT-13P-056-1094326-00

PATIENT
  Age: 47 Year
  Sex: Male

DRUGS (1)
  1. HUMIRA [Suspect]
     Indication: CROHN^S DISEASE
     Route: 058
     Dates: start: 20130307

REACTIONS (6)
  - Acne [Unknown]
  - Hypersensitivity [Unknown]
  - Oedema peripheral [Unknown]
  - Burning sensation [Unknown]
  - Gait disturbance [Unknown]
  - Skin exfoliation [Unknown]
